FAERS Safety Report 17351750 (Version 1)
Quarter: 2020Q1

REPORT INFORMATION
  Report Type: Spontaneous
  Country: US (occurrence: US)
  Receive Date: 20200130
  Receipt Date: 20200130
  Transmission Date: 20200409
  Serious: No
  Sender: FDA-Public Use
  Company Number: US-ASTRAZENECA-2020SE01095

PATIENT

DRUGS (2)
  1. BABY ASPIRIN [Concomitant]
     Active Substance: ASPIRIN
     Route: 048
  2. SYMBICORT [Suspect]
     Active Substance: BUDESONIDE\FORMOTEROL FUMARATE DIHYDRATE
     Indication: ASTHMA LATE ONSET
     Dosage: 80/4.5 UG TWO TIMES A DAY
     Route: 055

REACTIONS (3)
  - Asthma [Not Recovered/Not Resolved]
  - Influenza [Recovered/Resolved]
  - Malaise [Recovered/Resolved]
